FAERS Safety Report 5133034-2 (Version None)
Quarter: 2006Q4

REPORT INFORMATION
  Report Type: 
  Country: None (occurrence: None)
  Receive Date: 20061018
  Receipt Date: 20061009
  Transmission Date: 20070319
  Serious: Yes (Other)
  Sender: FDA-Public Use
  Company Number: GBWYE739018AUG06

PATIENT
  Age: 25 Year
  Sex: Female

DRUGS (2)
  1. PIPERACILLIN AND TAZOBACTAM [Suspect]
     Indication: LOWER RESPIRATORY TRACT INFECTION
     Dosage: 4.5 MG 4X PER 1 DAY
     Route: 042
     Dates: start: 20050203, end: 20050209
  2. OSELTAMIVIR (OSELTAMIVIR, , 0) [Suspect]
     Indication: VIRAL INFECTION
     Dosage: 75MG
     Route: 042
     Dates: start: 20050205, end: 20050208

REACTIONS (2)
  - VISUAL ACUITY REDUCED [None]
  - VISUAL DISTURBANCE [None]
